FAERS Safety Report 18359784 (Version 2)
Quarter: 2020Q4

REPORT INFORMATION
  Report Type: Report from Study
  Country: US (occurrence: US)
  Receive Date: 20201008
  Receipt Date: 20201019
  Transmission Date: 20210114
  Serious: Yes (Other)
  Sender: FDA-Public Use
  Company Number: US-GLAXOSMITHKLINE-US2020GSK155518

PATIENT
  Age: 77 Year
  Sex: Male
  Weight: 95.2 kg

DRUGS (1)
  1. BELANTAMAB MAFODOTIN. [Suspect]
     Active Substance: BELANTAMAB MAFODOTIN
     Indication: PLASMA CELL MYELOMA
     Dosage: UNK
     Dates: start: 20200324

REACTIONS (11)
  - Keratopathy [Not Recovered/Not Resolved]
  - Basal cell carcinoma [Recovering/Resolving]
  - Cataract [Not Recovered/Not Resolved]
  - Platelet count decreased [Recovered/Resolved]
  - Keratitis [Recovered/Resolved]
  - Visual impairment [Not Recovered/Not Resolved]
  - Toothache [Not Recovered/Not Resolved]
  - Platelet count decreased [Not Recovered/Not Resolved]
  - Platelet count decreased [Not Recovered/Not Resolved]
  - Fatigue [Not Recovered/Not Resolved]
  - Platelet count decreased [Recovered/Resolved]

NARRATIVE: CASE EVENT DATE: 20200327
